FAERS Safety Report 19024731 (Version 3)
Quarter: 2021Q2

REPORT INFORMATION
  Report Type: Report from Study
  Country: US (occurrence: US)
  Receive Date: 20210318
  Receipt Date: 20210422
  Transmission Date: 20210717
  Serious: No
  Sender: FDA-Public Use
  Company Number: NVSC2021US062356

PATIENT
  Sex: Female

DRUGS (1)
  1. ENTRESTO [Suspect]
     Active Substance: SACUBITRIL\VALSARTAN
     Indication: PRODUCT USED FOR UNKNOWN INDICATION
     Dosage: UNK UNK, BID
     Route: 048

REACTIONS (12)
  - Sinusitis [Unknown]
  - Blood pressure increased [Unknown]
  - Injury [Unknown]
  - Abdominal discomfort [Recovered/Resolved]
  - Memory impairment [Unknown]
  - Oral pain [Unknown]
  - Palpitations [Unknown]
  - Headache [Unknown]
  - Product dose omission issue [Unknown]
  - Anxiety [Unknown]
  - Cystitis [Unknown]
  - Weight increased [Unknown]
